FAERS Safety Report 17883766 (Version 1)
Quarter: 2020Q2

REPORT INFORMATION
  Report Type: Report from Study
  Country: US (occurrence: US)
  Receive Date: 20200611
  Receipt Date: 20200611
  Transmission Date: 20200714
  Serious: Yes (Death, Hospitalization, Other)
  Sender: FDA-Public Use
  Company Number: US-TEVA-2020-US-1247264

PATIENT
  Sex: Female

DRUGS (1)
  1. CLOZAPINE TEVA [Suspect]
     Active Substance: CLOZAPINE
     Dosage: CLOZAPINE ORALLY DISINTEGRATING TABLETS
     Route: 048

REACTIONS (3)
  - Agranulocytosis [Unknown]
  - Death [Fatal]
  - Neutrophil count abnormal [Unknown]
